FAERS Safety Report 20233883 (Version 5)
Quarter: 2022Q1

REPORT INFORMATION
  Report Type: Report from Study
  Country: FR (occurrence: FR)
  Receive Date: 20211227
  Receipt Date: 20220311
  Transmission Date: 20220423
  Serious: Yes (Death, Hospitalization, Other)
  Sender: FDA-Public Use
  Company Number: FR-ASTELLAS-2021US045003

PATIENT
  Age: 67 Year
  Sex: Male

DRUGS (7)
  1. ENFORTUMAB VEDOTIN [Suspect]
     Active Substance: ENFORTUMAB VEDOTIN
     Indication: Transitional cell carcinoma
     Dosage: 1.25 MG/KG (110MG PER INJECTION), CYCLIC (ON DAY 1, DAY 8 AND DAY 15)
     Route: 042
     Dates: start: 20211029, end: 20211112
  2. ENFORTUMAB VEDOTIN [Suspect]
     Active Substance: ENFORTUMAB VEDOTIN
     Indication: Clear cell papillary renal cell carcinoma
  3. TAMSULOSIN [Concomitant]
     Active Substance: TAMSULOSIN
     Indication: Product used for unknown indication
     Dosage: 0.4 MG, ONCE DAILY
     Route: 065
  4. IRBESARTAN [Concomitant]
     Active Substance: IRBESARTAN
     Indication: Product used for unknown indication
     Route: 065
  5. BISOPROLOL [Concomitant]
     Active Substance: BISOPROLOL
     Indication: Product used for unknown indication
     Route: 065
  6. ELIQUIS [Concomitant]
     Active Substance: APIXABAN
     Indication: Product used for unknown indication
     Route: 065
  7. ROSUVASTATIN [Concomitant]
     Active Substance: ROSUVASTATIN
     Indication: Product used for unknown indication
     Route: 065

REACTIONS (11)
  - Pruritus [Fatal]
  - Mucocutaneous rash [Fatal]
  - Dermatitis bullous [Fatal]
  - Febrile neutropenia [Fatal]
  - Sepsis [Fatal]
  - Febrile bone marrow aplasia [Fatal]
  - Multiple organ dysfunction syndrome [Fatal]
  - Acute kidney injury [Fatal]
  - Thrombocytopenia [Fatal]
  - Pancytopenia [Fatal]
  - Appendicitis [Fatal]

NARRATIVE: CASE EVENT DATE: 20211101
